FAERS Safety Report 17950121 (Version 2)
Quarter: 2020Q4

REPORT INFORMATION
  Report Type: Spontaneous
  Country: BR (occurrence: BR)
  Receive Date: 20200626
  Receipt Date: 20201021
  Transmission Date: 20210113
  Serious: Yes (Other)
  Sender: FDA-Public Use
  Company Number: NVSC2020BR180290

PATIENT
  Sex: Female

DRUGS (1)
  1. COSENTYX [Suspect]
     Active Substance: SECUKINUMAB
     Indication: PSORIATIC ARTHROPATHY
     Dosage: UNK (STARTED FEW MONTHS AGO)
     Route: 065

REACTIONS (2)
  - COVID-19 [Unknown]
  - Pyrexia [Recovered/Resolved]
